FAERS Safety Report 5277655-5 (Version None)
Quarter: 2007Q1

REPORT INFORMATION
  Report Type: 
  Country: None (occurrence: None)
  Receive Date: 20070327
  Receipt Date: 20070307
  Transmission Date: 20070707
  Serious: Yes (Hospitalization)
  Sender: FDA-Public Use
  Company Number: US-AMGEN-STX213939

PATIENT
  Sex: Female

DRUGS (3)
  1. ENBREL [Suspect]
     Indication: RHEUMATOID ARTHRITIS
     Route: 058
     Dates: start: 20040101
  2. ENBREL [Suspect]
     Indication: OSTEOARTHRITIS
  3. PLAQUENIL [Concomitant]
     Route: 048
     Dates: start: 19940101

REACTIONS (2)
  - INJECTION SITE IRRITATION [None]
  - KNEE ARTHROPLASTY [None]
